FAERS Safety Report 11122708 (Version 1)
Quarter: 2015Q2

REPORT INFORMATION
  Report Type: Spontaneous
  Country: US (occurrence: US)
  Receive Date: 20150519
  Receipt Date: 20150519
  Transmission Date: 20150821
  Serious: No
  Sender: FDA-Public Use
  Company Number: US-ABBVIE-14P-163-1209169-00

PATIENT
  Sex: Female

DRUGS (1)
  1. PROMETRIUM [Suspect]
     Active Substance: PROGESTERONE
     Indication: PRODUCT USED FOR UNKNOWN INDICATION

REACTIONS (5)
  - Eye swelling [Unknown]
  - Fibromyalgia [Unknown]
  - Tinnitus [Unknown]
  - Drug ineffective [Unknown]
  - Hypersensitivity [Unknown]
